FAERS Safety Report 6254125-9 (Version None)
Quarter: 2009Q2

REPORT INFORMATION
  Report Type: 
  Country: None (occurrence: None)
  Receive Date: 20090630
  Receipt Date: 20090630
  Transmission Date: 20091009
  Serious: Yes (Other)
  Sender: FDA-Public Use
  Company Number: None

PATIENT
  Age: 76 Year
  Sex: Male
  Weight: 92.9874 kg

DRUGS (2)
  1. HYDROXYZINE HCL [Suspect]
     Indication: PAIN OF SKIN
     Dosage: 25 MG ONE EVERY 6 HOURS PO
     Route: 048
     Dates: start: 20080808, end: 20080809
  2. HYDROXYZINE HCL [Suspect]
     Indication: PRURITUS
     Dosage: 25 MG ONE EVERY 6 HOURS PO
     Route: 048
     Dates: start: 20080808, end: 20080809

REACTIONS (3)
  - EMOTIONAL DISTRESS [None]
  - POLLAKIURIA [None]
  - WEIGHT DECREASED [None]
